FAERS Safety Report 4366243-0 (Version None)
Quarter: 2004Q2

REPORT INFORMATION
  Report Type: 
  Country: None (occurrence: None)
  Receive Date: 20040527
  Receipt Date: 20040518
  Transmission Date: 20050107
  Serious: Yes (Hospitalization)
  Sender: FDA-Public Use
  Company Number: KR-JNJFOC-20040504235

PATIENT
  Sex: Female
  Weight: 68 kg

DRUGS (2)
  1. SPORANOX [Suspect]
     Indication: ONYCHOMYCOSIS
     Dosage: 200 MG TWICE DAILY PULSE THERAPY FOR 1 WEEK, THEN 3 WEEKS OFF ITRACONAZOLE
     Route: 049
     Dates: start: 20031105, end: 20040317
  2. MOTILIUM-M [Concomitant]
     Indication: PROPHYLAXIS
     Dosage: 10 MG TWICE A DAY PULSE THERAPY FOR 1 WEEK, SEPARATED BY 3 WEEKS OFF DOMPERIDONE
     Route: 049
     Dates: start: 20031105, end: 20040317

REACTIONS (2)
  - HAEMOLYTIC ANAEMIA [None]
  - HEPATOCELLULAR DAMAGE [None]
